FAERS Safety Report 4955809-2 (Version None)
Quarter: 2006Q1

REPORT INFORMATION
  Report Type: 
  Country: None (occurrence: None)
  Receive Date: 20060328
  Receipt Date: 20060327
  Transmission Date: 20060701
  Serious: Yes (Hospitalization)
  Sender: FDA-Public Use
  Company Number: NL-JNJFOC-20060203408

PATIENT
  Age: 16 Year
  Sex: Male

DRUGS (4)
  1. IBUPROFEN [Suspect]
     Dosage: 400 MG, 3 IN 1 DAY, ORAL, FOR 3 DAYS
  2. IBUPROFEN [Suspect]
     Indication: JAW FRACTURE
     Dosage: 500 MG, 3 IN 1 DAY, RECTAL, FOR 2 DAYS
  3. AMOXICILLIN [Interacting]
     Dosage: 500 MG, 3 IN 1 DAY, ORAL, FOR 3 DAYS
  4. AMOXICILLIN [Interacting]
     Indication: JAW FRACTURE
     Dosage: 500 MG, 4 IN 1 DAY, IV, FOR 2 DAYS

REACTIONS (3)
  - DRUG INTERACTION [None]
  - HAEMOLYTIC ANAEMIA [None]
  - THROMBOCYTOPENIA [None]
